APPROVED DRUG PRODUCT: AMOXICILLIN
Active Ingredient: AMOXICILLIN
Strength: 400MG/5ML
Dosage Form/Route: FOR SUSPENSION;ORAL
Application: A065319 | Product #002 | TE Code: AB
Applicant: CHARTWELL RX SCIENCES LLC
Approved: Jun 18, 2007 | RLD: No | RS: No | Type: RX